FAERS Safety Report 9521533 (Version 1)
Quarter: 2013Q3

REPORT INFORMATION
  Report Type: Report from Study
  Country: CA (occurrence: CA)
  Receive Date: 20130913
  Receipt Date: 20130913
  Transmission Date: 20140515
  Serious: Yes (Other)
  Sender: FDA-Public Use
  Company Number: CA-JNJFOC-20130903574

PATIENT
  Age: 24 Year
  Sex: Male
  Weight: 97.4 kg

DRUGS (4)
  1. REMICADE [Suspect]
     Indication: CROHN^S DISEASE
     Dosage: INCREASED 10 MG/KG
     Route: 042
  2. REMICADE [Suspect]
     Indication: CROHN^S DISEASE
     Route: 042
     Dates: start: 20120906, end: 2013
  3. COUMADIN [Concomitant]
     Route: 048
  4. IMURAN [Concomitant]
     Route: 065

REACTIONS (4)
  - Intestinal stenosis [Unknown]
  - Large intestinal ulcer [Unknown]
  - Rectal ulcer [Unknown]
  - Headache [Unknown]
